FAERS Safety Report 5740723-5 (Version None)
Quarter: 2008Q2

REPORT INFORMATION
  Report Type: 
  Country: None (occurrence: None)
  Receive Date: 20080516
  Receipt Date: 20080505
  Transmission Date: 20081010
  Serious: Yes (Hospitalization)
  Sender: FDA-Public Use
  Company Number: US-ROCHE-492705

PATIENT
  Age: 78 Year
  Sex: Male

DRUGS (2)
  1. BONIVA [Suspect]
     Indication: OSTEOPOROSIS
     Dosage: PATIENT REPORTED TAKING ONE TABLET MONTHLY FOR 4 MONTHS AND ONE DOSE ON THE FIRST SUNDAY OF EACH MO+
     Route: 048
     Dates: start: 20070101
  2. COUMADIN [Concomitant]

REACTIONS (9)
  - ARTHRALGIA [None]
  - CONSTIPATION [None]
  - FALL [None]
  - MUSCULOSKELETAL DISCOMFORT [None]
  - SKIN DISORDER [None]
  - TEMPOROMANDIBULAR JOINT SYNDROME [None]
  - THORACIC VERTEBRAL FRACTURE [None]
  - TOOTH DISORDER [None]
  - WEIGHT DECREASED [None]
